FAERS Safety Report 21861925 (Version 2)
Quarter: 2023Q1

REPORT INFORMATION
  Report Type: Spontaneous
  Country: CL (occurrence: CL)
  Receive Date: 20230113
  Receipt Date: 20230130
  Transmission Date: 20230417
  Serious: Yes (Hospitalization)
  Sender: FDA-Public Use
  Company Number: CL-BIOGEN-2022BI01170847

PATIENT
  Age: 47 Year
  Sex: Female
  Weight: 55 kg

DRUGS (2)
  1. TYSABRI [Suspect]
     Active Substance: NATALIZUMAB
     Indication: Multiple sclerosis
     Dosage: 36 DOSES
     Route: 050
     Dates: start: 20160526, end: 20190404
  2. TYSABRI [Suspect]
     Active Substance: NATALIZUMAB
     Dosage: ON EXTENDED INTERVAL DOSING SINCE 2 OR 3 YEARS AGO; 26 DOSES
     Route: 050
     Dates: start: 20190606, end: 20221114

REACTIONS (2)
  - Secondary progressive multiple sclerosis [Not Recovered/Not Resolved]
  - Prescribed underdose [Recovered/Resolved]

NARRATIVE: CASE EVENT DATE: 20190606
